FAERS Safety Report 8046280-5 (Version None)
Quarter: 2012Q1

REPORT INFORMATION
  Report Type: 
  Country: None (occurrence: None)
  Receive Date: 20120113
  Receipt Date: 20120109
  Transmission Date: 20120608
  Serious: Yes (Death, Hospitalization, Other)
  Sender: FDA-Public Use
  Company Number: PHHY2012IL001988

PATIENT
  Age: 87 Year
  Sex: Female

DRUGS (3)
  1. CARBOPLATIN [Suspect]
     Indication: NEUROENDOCRINE CARCINOMA OF THE SKIN
     Dosage: 75 MG/M2, UNK
  2. ETOPOSIDE [Concomitant]
  3. RADIOTHERAPY [Concomitant]

REACTIONS (10)
  - DYSPNOEA [None]
  - GENERAL PHYSICAL HEALTH DETERIORATION [None]
  - RENAL FAILURE ACUTE [None]
  - NEUROENDOCRINE CARCINOMA OF THE SKIN [None]
  - DRUG CLEARANCE DECREASED [None]
  - PANCYTOPENIA [None]
  - PLEURAL EFFUSION [None]
  - LYMPHADENOPATHY [None]
  - ASTHENIA [None]
  - PYREXIA [None]
